FAERS Safety Report 9270352 (Version 2)
Quarter: 2013Q2

REPORT INFORMATION
  Report Type: Spontaneous
  Country: FR (occurrence: FR)
  Receive Date: 20130503
  Receipt Date: 20130509
  Transmission Date: 20140414
  Serious: Yes (Other)
  Sender: FDA-Public Use
  Company Number: FR-TEVA-401809ISR

PATIENT
  Sex: Female

DRUGS (2)
  1. PRAVASTATINE RATIOPHARM [Suspect]
     Dosage: .5 DOSAGE FORMS DAILY;
     Route: 048
     Dates: start: 2012
  2. MAXAIR [Concomitant]
     Indication: ASTHMA

REACTIONS (4)
  - Loss of consciousness [Recovered/Resolved]
  - Asphyxia [Recovered/Resolved]
  - Hyperhidrosis [Recovered/Resolved]
  - Benign vascular neoplasm [Unknown]
